FAERS Safety Report 11957360 (Version 3)
Quarter: 2016Q4

REPORT INFORMATION
  Report Type: Spontaneous
  Country: US (occurrence: US)
  Receive Date: 20160126
  Receipt Date: 20161207
  Transmission Date: 20170206
  Serious: Yes (Hospitalization, Other)
  Sender: FDA-Public Use
  Company Number: US-TEVA-629010USA

PATIENT
  Age: 84 Year
  Sex: Female

DRUGS (2)
  1. PROAIR HFA [Suspect]
     Active Substance: ALBUTEROL SULFATE
     Route: 055
  2. QVAR [Suspect]
     Active Substance: BECLOMETHASONE DIPROPIONATE
     Route: 055

REACTIONS (1)
  - Squamous cell carcinoma of lung [Recovering/Resolving]

NARRATIVE: CASE EVENT DATE: 201406
